FAERS Safety Report 12805440 (Version 1)
Quarter: 2016Q4

REPORT INFORMATION
  Report Type: Spontaneous
  Country: US (occurrence: US)
  Receive Date: 20161004
  Receipt Date: 20161004
  Transmission Date: 20170207
  Serious: Yes (Hospitalization, Other)
  Sender: FDA-Public Use
  Company Number: US-ASTRAZENECA-2016SF02654

PATIENT
  Age: 665 Month
  Sex: Female

DRUGS (15)
  1. LEVOTHYROXINE. [Concomitant]
     Active Substance: LEVOTHYROXINE
  2. ROBAXIN [Concomitant]
     Active Substance: METHOCARBAMOL
  3. OMEPRAZOLE. [Suspect]
     Active Substance: OMEPRAZOLE
     Route: 048
     Dates: start: 201511
  4. XGEVA [Concomitant]
     Active Substance: DENOSUMAB
     Dates: start: 2015
  5. LISINOPRIL. [Suspect]
     Active Substance: LISINOPRIL
     Route: 048
  6. VICODIN [Concomitant]
     Active Substance: ACETAMINOPHEN\HYDROCODONE BITARTRATE
     Dates: start: 2008
  7. VITAMIN D [Concomitant]
     Active Substance: CHOLECALCIFEROL
     Dates: start: 2009
  8. TIZANIDINE. [Concomitant]
     Active Substance: TIZANIDINE
     Dates: start: 2008
  9. TOPROL XL [Suspect]
     Active Substance: METOPROLOL SUCCINATE
     Route: 048
     Dates: start: 2005
  10. IBRANCE [Suspect]
     Active Substance: PALBOCICLIB
     Indication: BREAST CANCER METASTATIC
     Route: 048
     Dates: start: 201512
  11. FASLODEX [Suspect]
     Active Substance: FULVESTRANT
     Indication: BREAST CANCER METASTATIC
     Dosage: 2-250 MG INJECTIONS EVERY 28 DAYS
     Route: 030
     Dates: start: 2015
  12. RELAFEN [Concomitant]
     Active Substance: NABUMETONE
     Dates: start: 2008
  13. TRAMADOL. [Concomitant]
     Active Substance: TRAMADOL
     Dates: start: 2009
  14. XANAX [Concomitant]
     Active Substance: ALPRAZOLAM
     Dates: start: 2000
  15. ZOFRAN [Concomitant]
     Active Substance: ONDANSETRON HYDROCHLORIDE
     Dates: start: 2014

REACTIONS (6)
  - Abdominal pain upper [Recovered/Resolved]
  - Nausea [Recovered/Resolved]
  - White blood cell count decreased [Not Recovered/Not Resolved]
  - Breast cancer metastatic [Unknown]
  - Procedural pain [Unknown]
  - Localised infection [Recovered/Resolved]

NARRATIVE: CASE EVENT DATE: 201505
